FAERS Safety Report 15765216 (Version 1)
Quarter: 2018Q4

REPORT INFORMATION
  Report Type: Spontaneous
  Country: US (occurrence: US)
  Receive Date: 20181227
  Receipt Date: 20181227
  Transmission Date: 20190205
  Serious: Yes (Other)
  Sender: FDA-Public Use
  Company Number: US-SAKK-2018SA389848AA

PATIENT
  Age: 50 Year
  Sex: Female

DRUGS (2)
  1. NEORAL [Concomitant]
     Active Substance: CYCLOSPORINE
  2. DUPIXENT [Suspect]
     Active Substance: DUPILUMAB
     Indication: DERMATITIS ATOPIC
     Dosage: 300 MG, QOW
     Route: 058

REACTIONS (6)
  - Vision blurred [Unknown]
  - Age-related macular degeneration [Unknown]
  - Glaucoma [Unknown]
  - Cataract [Unknown]
  - Alopecia [Unknown]
  - Anxiety [Unknown]
